FAERS Safety Report 12273161 (Version 1)
Quarter: 2016Q2

REPORT INFORMATION
  Report Type: Spontaneous
  Country: US (occurrence: US)
  Receive Date: 20160415
  Receipt Date: 20160415
  Transmission Date: 20160815
  Serious: No
  Sender: FDA-Public Use
  Company Number: US-ROCHE-1053354

PATIENT
  Sex: Male

DRUGS (11)
  1. TELAPREVIR [Suspect]
     Active Substance: TELAPREVIR
     Indication: HEPATITIS C
     Route: 065
     Dates: start: 20120118
  2. NORVASC [Concomitant]
     Active Substance: AMLODIPINE BESYLATE
     Indication: HYPERTENSION
  3. ACTOS [Concomitant]
     Active Substance: PIOGLITAZONE HYDROCHLORIDE
     Dosage: DOSE REDUCED
     Route: 065
  4. VITAMIN B12 [Concomitant]
     Active Substance: CYANOCOBALAMIN
  5. MILK THISTLE [Concomitant]
     Active Substance: MILK THISTLE
  6. RIBASPHERE [Concomitant]
     Active Substance: RIBAVIRIN
     Route: 065
     Dates: start: 20120118
  7. HYDROCHLOROTHIAZIDE/LISINOPRIL [Concomitant]
     Active Substance: HYDROCHLOROTHIAZIDE\LISINOPRIL
     Indication: HYPERTENSION
     Route: 065
  8. MULTIVITAMINS [Concomitant]
     Active Substance: VITAMINS
  9. PEGASYS [Suspect]
     Active Substance: PEGINTERFERON ALFA-2A
     Indication: HEPATITIS C
     Route: 058
     Dates: start: 20120118
  10. RIBASPHERE RIBAPAK [Suspect]
     Active Substance: RIBAVIRIN
     Indication: HEPATITIS C
     Route: 048
     Dates: start: 20120118
  11. ACTOS [Concomitant]
     Active Substance: PIOGLITAZONE HYDROCHLORIDE
     Indication: TYPE 2 DIABETES MELLITUS
     Route: 065

REACTIONS (19)
  - Haemoglobin decreased [Unknown]
  - Weight decreased [Unknown]
  - Platelet count decreased [Unknown]
  - Asthenia [Unknown]
  - Drug intolerance [Unknown]
  - Nasal pruritus [Unknown]
  - Wound [Unknown]
  - Diarrhoea [Unknown]
  - Rash erythematous [Unknown]
  - Pruritus [Unknown]
  - Insomnia [Unknown]
  - Anxiety [Unknown]
  - Irritability [Unknown]
  - Fatigue [Unknown]
  - Decreased appetite [Unknown]
  - Temperature intolerance [Unknown]
  - Rectal haemorrhage [Unknown]
  - Dyspnoea [Unknown]
  - White blood cell count decreased [Unknown]
